FAERS Safety Report 5520950-2 (Version None)
Quarter: 2007Q4

REPORT INFORMATION
  Report Type: 
  Country: None (occurrence: None)
  Receive Date: 20071119
  Receipt Date: 20071119
  Transmission Date: 20080405
  Serious: Yes (Life-Threatening, Hospitalization, Other)
  Sender: FDA-Public Use
  Company Number: PHHO2006PL02028

PATIENT
  Age: 68 Year
  Sex: Female
  Weight: 68 kg

DRUGS (6)
  1. DARIFENACIN VS PLACEBO [Suspect]
     Indication: HYPERTONIC BLADDER
     Dosage: 7.5 MG, QD
     Route: 048
     Dates: start: 20060121, end: 20060127
  2. DIURESAN [Concomitant]
  3. ENARENAL [Concomitant]
     Dosage: 5 MG / DAY
     Route: 048
  4. KALIPOZ [Concomitant]
  5. FUROSEMIDE [Concomitant]
  6. KALIUM [Concomitant]

REACTIONS (5)
  - ATRIAL FIBRILLATION [None]
  - DYSPNOEA [None]
  - HYPERTHYROIDISM [None]
  - MALAISE [None]
  - PALPITATIONS [None]
